FAERS Safety Report 5908440-6 (Version None)
Quarter: 2008Q3

REPORT INFORMATION
  Report Type: 
  Country: None (occurrence: None)
  Receive Date: 20080930
  Receipt Date: 20080915
  Transmission Date: 20090109
  Serious: Yes (Hospitalization, Other)
  Sender: FDA-Public Use
  Company Number: 2008S1016842

PATIENT
  Age: 70 Year
  Sex: Male

DRUGS (1)
  1. LORAZEPAM [Suspect]
     Dosage: .5 MG

REACTIONS (4)
  - ACUTE RESPIRATORY FAILURE [None]
  - AGITATION [None]
  - ANXIETY [None]
  - DIAPHRAGMATIC PARALYSIS [None]
